FAERS Safety Report 20507311 (Version 1)
Quarter: 2022Q1

REPORT INFORMATION
  Report Type: Spontaneous
  Country: US (occurrence: US)
  Receive Date: 20220223
  Receipt Date: 20220223
  Transmission Date: 20220423
  Serious: No
  Sender: FDA-Public Use
  Company Number: US-BRACCO-2021US03964

PATIENT
  Age: 53 Year
  Sex: Male

DRUGS (2)
  1. ISOVUE 370 [Suspect]
     Active Substance: IOPAMIDOL
     Indication: Angiogram
     Dosage: 100 ML, SINGLE ( RT A/C IV SITE USING A INSYTE AUTOGUARD 20GA IV CATHETER)
     Route: 042
     Dates: start: 20210903, end: 20210903
  2. SODIUM CHLORIDE [Concomitant]
     Active Substance: SODIUM CHLORIDE
     Dosage: 5 ML/SEC
     Route: 040
     Dates: start: 20210903, end: 20210903

REACTIONS (2)
  - Extravasation [Recovered/Resolved]
  - Drug ineffective [Recovered/Resolved]

NARRATIVE: CASE EVENT DATE: 20210903
